FAERS Safety Report 10222403 (Version 1)
Quarter: 2014Q1

REPORT INFORMATION
  Report Type: Spontaneous
  Country: US (occurrence: None)
  Receive Date: 20140306
  Receipt Date: 20140306
  Transmission Date: 20141002
  Serious: Yes (Other)
  Sender: FDA-Public Use
  Company Number: 163-21880-13034214

PATIENT
  Age: 55 Year
  Sex: Male

DRUGS (1)
  1. REVLIMID(LENALIDOMIDE)(10 MILLIGRAM, CAPSULES) [Suspect]
     Indication: PLASMA CELL MYELOMA
     Dosage: 21 IN 28 DAY; TEMP. INTERRUPTED
     Route: 048
     Dates: start: 201212

REACTIONS (4)
  - Thrombosis [None]
  - Vein discolouration [None]
  - Vascular pain [None]
  - Muscle spasms [None]
